FAERS Safety Report 7887436-1 (Version None)
Quarter: 2011Q4

REPORT INFORMATION
  Report Type: 
  Country: None (occurrence: None)
  Receive Date: 20111102
  Receipt Date: 20110719
  Transmission Date: 20120403
  Serious: No
  Sender: FDA-Public Use
  Company Number: US-AMGEN-USASP2011036671

PATIENT
  Age: 61 Year
  Sex: Female

DRUGS (1)
  1. ENBREL [Suspect]
     Indication: PSORIATIC ARTHROPATHY
     Dosage: 25 MG, QWK
     Dates: start: 20110215, end: 20110610

REACTIONS (6)
  - MUSCULOSKELETAL STIFFNESS [None]
  - BRONCHITIS [None]
  - VOMITING [None]
  - MIDDLE EAR EFFUSION [None]
  - HEADACHE [None]
  - NAUSEA [None]
